FAERS Safety Report 7580652-8 (Version None)
Quarter: 2011Q2

REPORT INFORMATION
  Report Type: 
  Country: None (occurrence: None)
  Receive Date: 20110629
  Receipt Date: 20110623
  Transmission Date: 20111010
  Serious: Yes (Hospitalization)
  Sender: FDA-Public Use
  Company Number: IT-ABBOTT-11P-083-0734722-00

PATIENT
  Age: 79 Year
  Sex: Female

DRUGS (6)
  1. DEPAKENE [Suspect]
     Indication: MEDICATION ERROR
     Dosage: 600MG (S) DAILY; GASTRO-RESISTANT, ONCE
     Route: 048
     Dates: start: 20110620, end: 20110620
  2. SPIRIVA [Concomitant]
     Indication: PRODUCT USED FOR UNKNOWN INDICATION
  3. CORDARONE [Concomitant]
     Indication: PRODUCT USED FOR UNKNOWN INDICATION
  4. VALSARTAN AND HYDROCHLOROTHIAZIDE [Concomitant]
     Indication: PRODUCT USED FOR UNKNOWN INDICATION
  5. CHLORPROMAZINE [Suspect]
     Indication: MEDICATION ERROR
     Dosage: FILM-COATED, ONCE
     Route: 048
     Dates: start: 20110620, end: 20110620
  6. ASCRIPTIN [Concomitant]
     Indication: PRODUCT USED FOR UNKNOWN INDICATION

REACTIONS (4)
  - ASTHENIA [None]
  - SINUS BRADYCARDIA [None]
  - SYNCOPE [None]
  - MEDICATION ERROR [None]
